FAERS Safety Report 19859344 (Version 1)
Quarter: 2021Q3

REPORT INFORMATION
  Report Type: Spontaneous
  Country: US (occurrence: US)
  Receive Date: 20210921
  Receipt Date: 20210921
  Transmission Date: 20211014
  Serious: No
  Sender: FDA-Public Use
  Company Number: US-CELLTRION INC.-2020US034613

PATIENT

DRUGS (2)
  1. INFLECTRA [Suspect]
     Active Substance: INFLIXIMAB-DYYB
     Dosage: DOSE UNKNOWN, EVERY 10 WEEKS BY IV INFUSION
     Route: 042
  2. INFLECTRA [Suspect]
     Active Substance: INFLIXIMAB-DYYB
     Indication: SARCOIDOSIS
     Dosage: UNK, EVERY 8 WEEKS
     Route: 065

REACTIONS (5)
  - Illness [Recovering/Resolving]
  - Off label use [Unknown]
  - Intentional dose omission [Recovering/Resolving]
  - Throat irritation [Unknown]
  - Paranasal sinus discomfort [Unknown]
